FAERS Safety Report 18191800 (Version 2)
Quarter: 2020Q3

REPORT INFORMATION
  Report Type: Spontaneous
  Country: JP (occurrence: JP)
  Receive Date: 20200825
  Receipt Date: 20200908
  Transmission Date: 20201103
  Serious: Yes (Hospitalization)
  Sender: FDA-Public Use
  Company Number: NVSJ2020JP008014

PATIENT
  Age: 68 Year
  Sex: Male

DRUGS (2)
  1. METGLUCO [Suspect]
     Active Substance: METFORMIN HYDROCHLORIDE
     Indication: TYPE 2 DIABETES MELLITUS
     Dosage: 1750 MG
     Route: 048
  2. EQUMET [Suspect]
     Active Substance: METFORMIN HYDROCHLORIDE\VILDAGLIPTIN
     Indication: TYPE 2 DIABETES MELLITUS
     Dosage: UNK, METFORMIN HYDROCHLORIDE UNKNOWN/ VILDAGLIPTIN 50MG
     Route: 048

REACTIONS (3)
  - Acute kidney injury [Unknown]
  - Lactic acidosis [Recovering/Resolving]
  - Heat illness [Unknown]

NARRATIVE: CASE EVENT DATE: 20200816
